FAERS Safety Report 5857978-9 (Version None)
Quarter: 2008Q3

REPORT INFORMATION
  Report Type: 
  Country: None (occurrence: None)
  Receive Date: 20080826
  Receipt Date: 20080811
  Transmission Date: 20090109
  Serious: No
  Sender: FDA-Public Use
  Company Number: US-PFIZER INC-2008059767

PATIENT
  Sex: Male
  Weight: 81.818 kg

DRUGS (14)
  1. CHANTIX [Suspect]
     Indication: SMOKING CESSATION THERAPY
  2. GABAPENTIN [Suspect]
     Indication: CONVULSION
  3. DILANTIN [Suspect]
     Indication: CONVULSION
  4. ACETYLSALICYLIC ACID SRT [Concomitant]
  5. FUROSEMIDE [Concomitant]
  6. CITALOPRAM HYDROBROMIDE [Concomitant]
  7. OMEPRAZOLE [Concomitant]
  8. POTASSIUM CHLORIDE [Concomitant]
  9. ATENOLOL [Concomitant]
  10. TAMSULOSIN HCL [Concomitant]
  11. RISPERDAL [Concomitant]
  12. SIMVASTATIN [Concomitant]
  13. FORADIL [Concomitant]
  14. PROVENTIL GENTLEHALER [Concomitant]

REACTIONS (1)
  - NO ADVERSE EVENT [None]
